FAERS Safety Report 4917639-7 (Version None)
Quarter: 2006Q1

REPORT INFORMATION
  Report Type: 
  Country: None (occurrence: None)
  Receive Date: 20060215
  Receipt Date: 20060207
  Transmission Date: 20060701
  Serious: Yes (Death)
  Sender: FDA-Public Use
  Company Number: 2006019706

PATIENT
  Sex: Male

DRUGS (2)
  1. BEXTRA [Suspect]
     Indication: INFLAMMATION
     Dates: start: 20031001, end: 20040201
  2. BEXTRA [Suspect]
     Indication: PAIN
     Dates: start: 20031001, end: 20040201

REACTIONS (1)
  - MYOCARDIAL INFARCTION [None]
